FAERS Safety Report 4712608-4 (Version None)
Quarter: 2005Q3

REPORT INFORMATION
  Report Type: 
  Country: None (occurrence: None)
  Receive Date: 20050711
  Receipt Date: 20050630
  Transmission Date: 20060218
  Serious: Yes (Other)
  Sender: FDA-Public Use
  Company Number: 2005093441

PATIENT
  Sex: Male
  Weight: 74.8435 kg

DRUGS (4)
  1. ALDACTONE [Suspect]
     Indication: CARDIAC FAILURE CONGESTIVE
     Dosage: SEE IMAGE
     Route: 048
     Dates: start: 20030101, end: 20040101
  2. ALDACTONE [Suspect]
     Indication: CARDIAC FAILURE CONGESTIVE
     Dosage: SEE IMAGE
     Route: 048
     Dates: start: 20040101, end: 20050619
  3. LASIX [Concomitant]
  4. DEMADEX [Concomitant]

REACTIONS (8)
  - ASCITES [None]
  - BREAST TENDERNESS [None]
  - FEMINISATION ACQUIRED [None]
  - FLUID RETENTION [None]
  - GYNAECOMASTIA [None]
  - LIBIDO DECREASED [None]
  - OEDEMA PERIPHERAL [None]
  - RENAL DISORDER [None]
